FAERS Safety Report 6759881-9 (Version None)
Quarter: 2010Q2

REPORT INFORMATION
  Report Type: 
  Country: None (occurrence: None)
  Receive Date: 20100608
  Receipt Date: 20100527
  Transmission Date: 20101027
  Serious: Yes (Hospitalization, Other)
  Sender: FDA-Public Use
  Company Number: US-ASTRAZENECA-2007UW17717

PATIENT
  Age: 20618 Day
  Sex: Male

DRUGS (4)
  1. SEROQUEL [Suspect]
     Indication: SLEEP DISORDER
     Route: 048
     Dates: start: 20011205
  2. SEROQUEL [Suspect]
     Dosage: 25 MG TWO TABLETS BY MOUTH AT BEDTIME
     Route: 048
     Dates: start: 20020730
  3. ATENOLOL [Concomitant]
     Route: 048
     Dates: start: 20011205
  4. HYDROCHLOROTHIAZIDE [Concomitant]
     Route: 048
     Dates: start: 20011205

REACTIONS (2)
  - PANCREATIC PSEUDOCYST [None]
  - PANCREATITIS [None]
